FAERS Safety Report 14821866 (Version 1)
Quarter: 2018Q2

REPORT INFORMATION
  Report Type: Spontaneous
  Country: CZ (occurrence: CZ)
  Receive Date: 20180427
  Receipt Date: 20180427
  Transmission Date: 20180711
  Serious: Yes (Other)
  Sender: FDA-Public Use
  Company Number: PHHY2018CZ073667

PATIENT
  Age: 71 Year
  Sex: Female

DRUGS (5)
  1. AMOKSIKLAV [Suspect]
     Active Substance: AMOXICILLIN\CLAVULANATE POTASSIUM
     Indication: SWELLING
     Dosage: 2X2
     Route: 065
     Dates: start: 20171103
  2. ERDOMED [Concomitant]
     Active Substance: ERDOSTEINE
     Indication: PRODUCT USED FOR UNKNOWN INDICATION
     Dosage: ONLY 5 TABLETS, WITHOUT EFFECT
     Route: 065
  3. DETRALEX [Suspect]
     Active Substance: DIOSMIN\HESPERIDIN
     Indication: PRODUCT USED FOR UNKNOWN INDICATION
     Dosage: 2 DF, BID
     Route: 065
  4. EUTHYROX [Concomitant]
     Active Substance: LEVOTHYROXINE SODIUM
     Indication: PRODUCT USED FOR UNKNOWN INDICATION
     Route: 065
  5. AMOKSIKLAV [Suspect]
     Active Substance: AMOXICILLIN\CLAVULANATE POTASSIUM
     Dosage: 2X2
     Route: 065
     Dates: start: 20171110

REACTIONS (8)
  - Dysphagia [Recovering/Resolving]
  - Tongue oedema [Recovering/Resolving]
  - Anal pruritus [Recovering/Resolving]
  - Vulvovaginal pruritus [Recovering/Resolving]
  - Glossodynia [Recovering/Resolving]
  - Tongue erythema [Recovering/Resolving]
  - Laryngeal oedema [Recovering/Resolving]
  - Oropharyngeal pain [Recovering/Resolving]

NARRATIVE: CASE EVENT DATE: 20171028
